FAERS Safety Report 9331613 (Version 2)
Quarter: 2013Q2

REPORT INFORMATION
  Report Type: Spontaneous
  Country: JP (occurrence: None)
  Receive Date: 20130531
  Receipt Date: 20130610
  Transmission Date: 20140414
  Serious: Yes (Death)
  Sender: FDA-Public Use
  Company Number: TCI2013A02879

PATIENT
  Age: 85 Year
  Sex: Male

DRUGS (18)
  1. NESINA [Suspect]
     Indication: TYPE 2 DIABETES MELLITUS
     Route: 048
     Dates: start: 20120320, end: 20120628
  2. TAKEPRON OD (LANSOPRAZOLE) [Concomitant]
  3. ECARD COMBINATION TABLETS LD (CANDESARTAN CILEXETIL, HYDROCHLOROTHIAZIDE) [Concomitant]
  4. BLOPRESS (CANDESARTAN CILEXETIL) [Concomitant]
  5. MICOMBI AP (HYDROCHLOROTHIAZIDE, TELMISARTAIN) [Concomitant]
  6. CLARITH (CLARITHROMYCIN) [Concomitant]
  7. ALDACTONE-A (SPIRONOLACTONE) [Concomitant]
  8. LASIX (FUROSEMIDE) [Concomitant]
  9. PIMENOL (PIRMENOL HYDROCHLORIDE) [Concomitant]
  10. AVOLVE (DUTASTERIDE) [Concomitant]
  11. THEOLONG (THEOPHYLLINE) [Concomitant]
  12. URINORM (BENZBROMARONE) [Concomitant]
  13. SINGULAIR [Concomitant]
  14. MUCOSOLVAN L (AMBROXOL HYDROCHLORIDE) [Concomitant]
  15. DEPAS (ETIZOLAM) [Concomitant]
  16. FEBURIC (REBUXOSTAT) [Concomitant]
  17. MAGMITT (MAGNESIUM OXIDE) [Concomitant]
  18. FEBURIC (FEBUXOSTAT) [Concomitant]

REACTIONS (2)
  - Gastroenteritis viral [None]
  - Gastroenteritis norovirus [None]
